FAERS Safety Report 7499235-3 (Version None)
Quarter: 2011Q2

REPORT INFORMATION
  Report Type: 
  Country: None (occurrence: None)
  Receive Date: 20110524
  Receipt Date: 20110517
  Transmission Date: 20111010
  Serious: Yes (Hospitalization)
  Sender: FDA-Public Use
  Company Number: US-US-EMD SERONO, INC.-7060455

PATIENT
  Sex: Male
  Weight: 101 kg

DRUGS (4)
  1. REBIF [Suspect]
     Indication: MULTIPLE SCLEROSIS
     Route: 058
     Dates: start: 20091113
  2. BLOOD PRESSURE PILL [Concomitant]
  3. ACETAMINOPHEN [Concomitant]
     Indication: PREMEDICATION
  4. CHOLESTEROL PILL [Concomitant]

REACTIONS (3)
  - INJECTION SITE ERYTHEMA [None]
  - TRIGEMINAL NEURALGIA [None]
  - CHILLS [None]
